FAERS Safety Report 4415231-4 (Version None)
Quarter: 2004Q3

REPORT INFORMATION
  Report Type: 
  Country: None (occurrence: None)
  Receive Date: 20040804
  Receipt Date: 20040514
  Transmission Date: 20050211
  Serious: Yes (Hospitalization)
  Sender: FDA-Public Use
  Company Number: FR-GLAXOSMITHKLINE-B0332853A

PATIENT
  Age: 4 Year
  Sex: Female
  Weight: 19.6 kg

DRUGS (2)
  1. AUGMENTIN '250' [Suspect]
     Indication: EAR INFECTION
     Route: 048
     Dates: start: 20030712
  2. ACETAMINOPHEN [Concomitant]
     Indication: PYREXIA
     Dosage: 3SP PER DAY
     Route: 048
     Dates: start: 20030707

REACTIONS (7)
  - ABDOMINAL PAIN [None]
  - BLOOD AMYLASE INCREASED [None]
  - BLOOD TRIGLYCERIDES INCREASED [None]
  - FAECALOMA [None]
  - LIPASE INCREASED [None]
  - PANCREATITIS ACUTE [None]
  - VOMITING [None]
